FAERS Safety Report 13235835 (Version 4)
Quarter: 2017Q3

REPORT INFORMATION
  Report Type: Spontaneous
  Country: US (occurrence: US)
  Receive Date: 20170215
  Receipt Date: 20170731
  Transmission Date: 20171127
  Serious: Yes (Hospitalization, Other)
  Sender: FDA-Public Use
  Company Number: US-PFIZER INC-2016277120

PATIENT
  Age: 44 Year
  Sex: Female
  Weight: 104.3 kg

DRUGS (34)
  1. LYRICA [Suspect]
     Active Substance: PREGABALIN
     Indication: NEUROPATHY PERIPHERAL
     Dosage: 300 MG, 2X/DAY, (2 CAPSULES)
     Route: 048
     Dates: start: 20100726
  2. ROXICODONE [Concomitant]
     Active Substance: OXYCODONE HYDROCHLORIDE
     Dosage: 5 MG, UNK
  3. CALCIUM + D3 [Concomitant]
     Active Substance: CALCIUM\CHOLECALCIFEROL
     Dosage: UNK, [CALCIUM CARBONATE 600 MG]/[COLECALCIFEROL 200 MG]
  4. BACTRIM DS [Concomitant]
     Active Substance: SULFAMETHOXAZOLE\TRIMETHOPRIM
     Dosage: UNK, [SULFAMETHOXAZOLE 800 MG]/ [TRIMETHOPRIM 160 MG]
  5. HYDROGEL [Concomitant]
     Dosage: UNK
  6. ADVIL [Concomitant]
     Active Substance: IBUPROFEN
     Indication: PAIN
     Dosage: 800 MG, AS NEEDED, (EVERY 6 HOURS)
     Route: 048
  7. NOVOLIN N [Concomitant]
     Active Substance: INSULIN HUMAN
     Dosage: 80 IU, 2X/DAY
     Route: 058
  8. PAMELOR [Concomitant]
     Active Substance: NORTRIPTYLINE HYDROCHLORIDE
     Dosage: 50 MG, 1X/DAY, (NIGHTLY AT BEDTIME)
     Route: 048
  9. SEPTRA DS [Concomitant]
     Active Substance: SULFAMETHOXAZOLE\TRIMETHOPRIM
     Dosage: UNK, [SULFAMETHOXAZOLE 800 MG]/ [TRIMETHOPRIM 160 MG]
  10. LYRICA [Suspect]
     Active Substance: PREGABALIN
     Indication: DIABETIC NEUROPATHY
     Dosage: 150 X4 A DAY
     Route: 048
  11. IBUPROFEN. [Concomitant]
     Active Substance: IBUPROFEN
     Dosage: 800 MG, AS NEEDED(TAKE ONE TABLET BY MOUTH EVERY 6 HOURS)
     Route: 048
  12. LEVOTHROID [Concomitant]
     Active Substance: LEVOTHYROXINE SODIUM
     Dosage: 88 UG, 1X/DAY, (ONE HOUR BEFORE BREAKFAST)
     Route: 048
  13. ENOXAPARIN [Concomitant]
     Active Substance: ENOXAPARIN
     Dosage: UNK
  14. SYNTHROID [Concomitant]
     Active Substance: LEVOTHYROXINE SODIUM
     Dosage: 88 UG, 1X/DAY, (ONE HOUR BEFORE BREAKFAST)
     Route: 048
  15. PRINIVIL [Concomitant]
     Active Substance: LISINOPRIL
     Dosage: 2.5 MG, DAILY
     Route: 048
  16. LIDEX [Concomitant]
     Active Substance: FLUOCINONIDE
     Dosage: UNK UNK, AS NEEDED, (2 TIMES DAILY TO AFFECTED AREA FOR 1-2 WEEK)
     Route: 061
  17. GLUCOPHAGE [Concomitant]
     Active Substance: METFORMIN HYDROCHLORIDE
     Dosage: 1000 MG, 2X/DAY
     Route: 048
  18. ZESTRIL [Concomitant]
     Active Substance: LISINOPRIL
     Dosage: 2.5 MG, DAILY
     Route: 048
  19. PROZAC [Concomitant]
     Active Substance: FLUOXETINE HYDROCHLORIDE
     Dosage: 40 MG, DAILY
     Route: 048
  20. MOTRIN [Concomitant]
     Active Substance: IBUPROFEN
     Indication: PAIN
     Dosage: 800 MG, AS NEEDED, (EVERY 6 HOURS)
     Route: 048
  21. HUMULIN N [Concomitant]
     Active Substance: INSULIN HUMAN
     Dosage: 200 IU, DAILY
     Route: 058
  22. INSULIN HUMAN [Concomitant]
     Active Substance: INSULIN HUMAN
     Dosage: 200 IU, DAILY
     Route: 058
  23. METFORMIN [Concomitant]
     Active Substance: METFORMIN HYDROCHLORIDE
     Dosage: 1000 MG, 2X/DAY
     Route: 048
  24. FLUOCINONIDE. [Concomitant]
     Active Substance: FLUOCINONIDE
     Dosage: UNK UNK, AS NEEDED(APPLY TOPICALLY 2 TIMES DAILY TO AFFECTED AREA FOR 1-2 WEEK)
     Route: 061
  25. LYRICA [Suspect]
     Active Substance: PREGABALIN
     Indication: NEURALGIA
     Dosage: 150 MG, 2X/DAY
     Route: 048
  26. ULTRAM [Concomitant]
     Active Substance: TRAMADOL HYDROCHLORIDE
     Dosage: 50 MG, UNK
  27. NORCO [Concomitant]
     Active Substance: ACETAMINOPHEN\HYDROCODONE BITARTRATE
     Indication: PAIN
     Dosage: 1 DF, AS NEEDED, (HYDROCODONE BITARTRATE:5MG/PARACETAMOL:325MG)(TAKE 1 TABLET EVERY 8 HOURS)
     Route: 048
  28. LOVENOX [Concomitant]
     Active Substance: ENOXAPARIN SODIUM
  29. NOVOLIN N [Concomitant]
     Active Substance: INSULIN HUMAN
     Dosage: 200 IU, DAILY
     Route: 058
  30. FLUOXETINE [Concomitant]
     Active Substance: FLUOXETINE HYDROCHLORIDE
     Dosage: 40 MG, DAILY(TAKE 1 CAPSULE BY MOUTH DAILY)
     Route: 048
  31. INSULIN HUMAN [Concomitant]
     Active Substance: INSULIN HUMAN
     Dosage: 80 IU, 2X/DAY
     Route: 058
  32. NORTRIPTYLINE [Concomitant]
     Active Substance: NORTRIPTYLINE
     Dosage: 50 MG, 1X/DAY
     Route: 048
  33. PERCOCET [Concomitant]
     Active Substance: ACETAMINOPHEN\OXYCODONE HYDROCHLORIDE
     Dosage: UNK, [OXYCODONE: 5MG] /[ACETAMINOPHEN 325 MG]
  34. HUMULIN N [Concomitant]
     Active Substance: INSULIN HUMAN
     Dosage: 80 IU, 2X/DAY
     Route: 058

REACTIONS (15)
  - Pain [Unknown]
  - Ligament sprain [Unknown]
  - Prescribed overdose [Unknown]
  - Staphylococcal infection [Recovered/Resolved]
  - Drug dose omission [Recovered/Resolved]
  - Drug dose omission [Recovered/Resolved]
  - Fall [Unknown]
  - Localised infection [Recovered/Resolved]
  - Cellulitis [Unknown]
  - Foot fracture [Unknown]
  - Investigation abnormal [Unknown]
  - Foot fracture [Not Recovered/Not Resolved]
  - Abscess [Unknown]
  - Foot fracture [Unknown]
  - Epistaxis [Unknown]

NARRATIVE: CASE EVENT DATE: 20100726
